FAERS Safety Report 18533269 (Version 1)
Quarter: 2020Q4

REPORT INFORMATION
  Report Type: Spontaneous
  Country: US (occurrence: US)
  Receive Date: 20201123
  Receipt Date: 20201123
  Transmission Date: 20210114
  Serious: Yes (Life-Threatening, Hospitalization)
  Sender: FDA-Public Use
  Company Number: US-MYLANLABS-2020M1095236

PATIENT
  Age: 56 Year
  Sex: Female

DRUGS (4)
  1. METHADONE [Suspect]
     Active Substance: METHADONE HYDROCHLORIDE
     Indication: DRUG DEPENDENCE
     Dosage: 2.4 GRAM
     Route: 048
  2. LEVETIRACETAM. [Concomitant]
     Active Substance: LEVETIRACETAM
     Indication: SEIZURE
     Dosage: UNK
     Route: 065
  3. NALOXONE [Suspect]
     Active Substance: NALOXONE
     Indication: INTENTIONAL OVERDOSE
     Dosage: 1 MILLIGRAM TOTAL 3 DOSES
     Route: 065
  4. METHADONE [Suspect]
     Active Substance: METHADONE HYDROCHLORIDE
     Indication: BACK PAIN
     Dosage: 60 MILLIGRAM, QD
     Route: 048

REACTIONS (7)
  - Cardiogenic shock [Recovered/Resolved]
  - Intentional overdose [Recovered/Resolved]
  - Unresponsive to stimuli [Recovered/Resolved]
  - Suicide attempt [Recovered/Resolved]
  - Cardiotoxicity [Recovered/Resolved]
  - Drug ineffective [Unknown]
  - Acute right ventricular failure [Recovered/Resolved]
